FAERS Safety Report 8960392 (Version 1)
Quarter: 2012Q4

REPORT INFORMATION
  Report Type: 
  Country: HR (occurrence: HR)
  Receive Date: 20121211
  Receipt Date: 20121211
  Transmission Date: 20130627
  Serious: Yes (Hospitalization, Other)
  Sender: FDA-Public Use
  Company Number: HR-WATSON-2012-21530

PATIENT
  Age: 72 Year
  Sex: Female

DRUGS (1)
  1. METFORMIN HYDROCHLORIDE [Suspect]
     Indication: TYPE 2 DIABETES MELLITUS
     Dosage: 850 mg twice daily, decreased to 850 mg daily
     Route: 065

REACTIONS (2)
  - Anaemia haemolytic autoimmune [Recovered/Resolved]
  - Diarrhoea [Recovered/Resolved]
